FAERS Safety Report 13422704 (Version 1)
Quarter: 2017Q2

REPORT INFORMATION
  Report Type: Spontaneous
  Country: None (occurrence: FR)
  Receive Date: 20170410
  Receipt Date: 20170410
  Transmission Date: 20170830
  Serious: Yes (Hospitalization)
  Sender: FDA-Public Use
  Company Number: FR-ALLERGAN-1713093US

PATIENT
  Age: 88 Year
  Sex: Female

DRUGS (25)
  1. TOPALGIC (FRANCE) [Suspect]
     Active Substance: TRAMADOL
     Indication: PAIN
     Dosage: UNK
     Route: 048
     Dates: start: 20170228
  2. STERDEX [Suspect]
     Active Substance: DEXAMETHASONE\OXYTETRACYCLINE
     Indication: PROPHYLAXIS
     Dosage: UNK
     Route: 047
     Dates: start: 20170227, end: 20170228
  3. CORTANCYL [Suspect]
     Active Substance: PREDNISONE
     Indication: VITRECTOMY
     Dosage: UNK
     Route: 047
     Dates: start: 20170228, end: 20170309
  4. SODIUM HYALURONATE MINI [Suspect]
     Active Substance: HYALURONATE SODIUM
     Indication: PRODUCT USED FOR UNKNOWN INDICATION
     Dosage: UNK
     Dates: start: 20170112
  5. PERFALGAN [Suspect]
     Active Substance: ACETAMINOPHEN
     Indication: PAIN PROPHYLAXIS
     Dosage: UNK
     Route: 042
     Dates: start: 20170227, end: 20170227
  6. SUFENTANIL [Suspect]
     Active Substance: SUFENTANIL
     Indication: ANAESTHESIA
     Dosage: UNK
     Route: 042
     Dates: start: 20170227, end: 20170227
  7. METHYLPREDNISOLONE. [Suspect]
     Active Substance: METHYLPREDNISOLONE
     Indication: VITRECTOMY
     Dosage: UNK
     Route: 042
     Dates: start: 20170227, end: 20170227
  8. MYDRIATICUM [Suspect]
     Active Substance: TROPICAMIDE
     Indication: MYDRIASIS
     Dosage: 1 GTT, QD
     Route: 047
  9. ATARAX [Concomitant]
     Active Substance: HYDROXYZINE HYDROCHLORIDE
     Indication: RASH
     Dosage: UNK
     Dates: start: 20170227
  10. AZYTER [Suspect]
     Active Substance: AZITHROMYCIN ANHYDROUS
     Indication: ANTIBIOTIC PROPHYLAXIS
     Dosage: 1 GTT, QD
     Route: 047
     Dates: start: 20170228, end: 20170228
  11. DACRYOSERUM [Suspect]
     Active Substance: BORIC ACID\SODIUM BORATE
     Indication: PROPHYLAXIS
     Dosage: 6 GTT, QD
     Dates: start: 20170228, end: 20170309
  12. COMBIGAN [Suspect]
     Active Substance: BRIMONIDINE TARTRATE\TIMOLOL MALEATE
     Indication: VITRECTOMY
     Dosage: 2 GTT, QD
     Route: 047
     Dates: start: 20170228, end: 20170309
  13. EPHEDRINE. [Suspect]
     Active Substance: EPHEDRINE
     Indication: VITRECTOMY
     Dosage: UNK
     Route: 042
     Dates: start: 20170227, end: 20170227
  14. DESFLURANE. [Suspect]
     Active Substance: DESFLURANE
     Indication: ANAESTHESIA
     Dosage: UNK
     Route: 055
     Dates: start: 20170227, end: 20170227
  15. PROPOFOL. [Suspect]
     Active Substance: PROPOFOL
     Indication: ANAESTHESIA
     Dosage: UNK
     Route: 042
     Dates: start: 20170227, end: 20170227
  16. TRACRIUM [Suspect]
     Active Substance: ATRACURIUM BESYLATE
     Indication: ANAESTHESIA
     Dosage: UNK
     Route: 042
     Dates: start: 20170227, end: 20170227
  17. OFLOCET [Suspect]
     Active Substance: OFLOXACIN
     Indication: PRODUCT USED FOR UNKNOWN INDICATION
     Dosage: UNK
     Route: 048
     Dates: start: 20170227, end: 20170227
  18. RIFAMYCINE CHIBRET [Suspect]
     Active Substance: RIFAMYCIN
     Indication: ANTIBIOTIC PROPHYLAXIS
     Dosage: UNK
     Route: 061
     Dates: start: 20170228, end: 20170309
  19. VESICARE [Concomitant]
     Active Substance: SOLIFENACIN SUCCINATE
     Indication: PRODUCT USED FOR UNKNOWN INDICATION
  20. NEOSYNEPHRINE [Suspect]
     Active Substance: PHENYLEPHRINE HYDROCHLORIDE
     Indication: VITRECTOMY
     Dosage: UNK
     Route: 042
     Dates: start: 20170227, end: 20170227
  21. DEXAFREE [Suspect]
     Active Substance: DEXAMETHASONE SODIUM PHOSPHATE
     Indication: VITRECTOMY
     Dosage: 1 MG/ML, UNK
     Route: 047
     Dates: start: 20170228, end: 20170228
  22. DACRYOSERUM [Suspect]
     Active Substance: BORIC ACID\SODIUM BORATE
     Indication: PRODUCT USED FOR UNKNOWN INDICATION
     Dosage: UNK
     Dates: start: 20170112
  23. NEFOPAM [Suspect]
     Active Substance: NEFOPAM
     Indication: PAIN PROPHYLAXIS
     Dosage: UNK
     Route: 042
     Dates: start: 20170227, end: 20170227
  24. MICARDIS [Concomitant]
     Active Substance: TELMISARTAN
     Indication: PRODUCT USED FOR UNKNOWN INDICATION
  25. CATIONORM [Suspect]
     Active Substance: CETALKONIUM\GLYCERIN\MINERAL OIL\POLOXAMER 188\TROMETHAMINE\TYLOXAPOL
     Indication: PRODUCT USED FOR UNKNOWN INDICATION

REACTIONS (1)
  - Drug reaction with eosinophilia and systemic symptoms [Recovering/Resolving]

NARRATIVE: CASE EVENT DATE: 20170306
